FAERS Safety Report 7332481-8 (Version None)
Quarter: 2011Q1

REPORT INFORMATION
  Report Type: 
  Country: None (occurrence: None)
  Receive Date: 20110304
  Receipt Date: 20110224
  Transmission Date: 20110831
  Serious: Yes (Other)
  Sender: FDA-Public Use
  Company Number: IE-AMGEN-IRLSP2011010828

PATIENT
  Sex: Female

DRUGS (3)
  1. ELTROXIN [Concomitant]
  2. LIPITOR [Concomitant]
  3. ARANESP [Suspect]
     Indication: ANAEMIA OF MALIGNANT DISEASE
     Dosage: 150 A?G, Q3WK
     Route: 058

REACTIONS (2)
  - NEOPLASM MALIGNANT [None]
  - LUNG NEOPLASM MALIGNANT [None]
